FAERS Safety Report 24191288 (Version 2)
Quarter: 2024Q3

REPORT INFORMATION
  Report Type: Spontaneous
  Country: US (occurrence: US)
  Receive Date: 20240808
  Receipt Date: 20240911
  Transmission Date: 20241016
  Serious: Yes (Hospitalization)
  Sender: ANI
  Company Number: US-ANIPHARMA-2024-US-042028

PATIENT
  Age: 56 Year
  Sex: Female

DRUGS (1)
  1. CORTICOTROPIN [Suspect]
     Active Substance: CORTICOTROPIN
     Indication: Multiple sclerosis
     Dosage: 80 UNITS QD X 2-3 WEEKS
     Route: 058

REACTIONS (5)
  - Pain [Unknown]
  - Blood pressure increased [Unknown]
  - Palpitations [Unknown]
  - Blood potassium decreased [Unknown]
  - Carbon dioxide increased [Unknown]
